FAERS Safety Report 21493703 (Version 1)
Quarter: 2022Q4

REPORT INFORMATION
  Report Type: Report from Study
  Country: US (occurrence: US)
  Receive Date: 20221021
  Receipt Date: 20221021
  Transmission Date: 20230113
  Serious: Yes (Hospitalization, Other)
  Sender: FDA-Public Use
  Company Number: US-BoehringerIngelheim-2021-BI-098882

PATIENT
  Age: 72 Year
  Sex: Female

DRUGS (3)
  1. OFEV [Suspect]
     Active Substance: NINTEDANIB
     Indication: Idiopathic pulmonary fibrosis
     Dosage: ADDITIONAL LOT NO: 102164, 103969,102378A
     Route: 048
     Dates: start: 20210414
  2. OFEV [Suspect]
     Active Substance: NINTEDANIB
     Route: 048
  3. ZOFRAN [Suspect]
     Active Substance: ONDANSETRON HYDROCHLORIDE
     Indication: Product used for unknown indication

REACTIONS (15)
  - Pneumonia [Recovering/Resolving]
  - Osteomyelitis [Unknown]
  - Weight decreased [Unknown]
  - Vomiting [Unknown]
  - Diarrhoea [Recovering/Resolving]
  - Nausea [Recovering/Resolving]
  - Loss of consciousness [Unknown]
  - Dehydration [Unknown]
  - Multiple allergies [Unknown]
  - Chest discomfort [Unknown]
  - Memory impairment [Unknown]
  - Constipation [Unknown]
  - Tooth infection [Unknown]
  - Dyspnoea [Recovering/Resolving]
  - Decreased appetite [Unknown]

NARRATIVE: CASE EVENT DATE: 20210401
